FAERS Safety Report 25504286 (Version 1)
Quarter: 2025Q2

REPORT INFORMATION
  Report Type: Spontaneous
  Country: US (occurrence: None)
  Receive Date: 20250630
  Receipt Date: 20250630
  Transmission Date: 20250717
  Serious: Yes (Hospitalization)
  Sender: FDA-CTU
  Company Number: None

PATIENT
  Age: 47 Year
  Sex: Female
  Weight: 84.15 kg

DRUGS (3)
  1. ZEPBOUND [Suspect]
     Active Substance: TIRZEPATIDE
  2. Thyroid replacement [Concomitant]
  3. migraine abortive [Concomitant]

REACTIONS (3)
  - Vomiting [None]
  - Diarrhoea [None]
  - Product packaging quantity issue [None]

NARRATIVE: CASE EVENT DATE: 20250630
